FAERS Safety Report 14364715 (Version 1)
Quarter: 2018Q1

REPORT INFORMATION
  Report Type: Spontaneous
  Country: US (occurrence: US)
  Receive Date: 20180106
  Receipt Date: 20180106
  Transmission Date: 20180509
  Serious: No
  Sender: FDA-Public Use
  Company Number: None

PATIENT
  Age: 43 Year
  Sex: Female

DRUGS (1)
  1. BETAMETHASONE DIPROPIONATE. [Suspect]
     Active Substance: BETAMETHASONE DIPROPIONATE
     Indication: ECZEMA
     Dates: start: 20000101, end: 20170215

REACTIONS (3)
  - Therapy cessation [None]
  - Eczema [None]
  - Withdrawal syndrome [None]

NARRATIVE: CASE EVENT DATE: 20170215
